FAERS Safety Report 23592737 (Version 2)
Quarter: 2024Q2

REPORT INFORMATION
  Report Type: Spontaneous
  Country: US (occurrence: US)
  Receive Date: 20240304
  Receipt Date: 20240430
  Transmission Date: 20240716
  Serious: No
  Sender: FDA-Public Use
  Company Number: US-PFIZER INC-PV202300168164

PATIENT
  Age: 83 Year
  Sex: Female

DRUGS (2)
  1. IBRANCE [Suspect]
     Active Substance: PALBOCICLIB
     Indication: Breast neoplasm
     Dosage: 125 MG, CYCLIC, 1 TABLET D1-28 OF A 28D CYCLE
  2. IBRANCE [Suspect]
     Active Substance: PALBOCICLIB
     Dosage: 75 MG

REACTIONS (1)
  - Full blood count decreased [Unknown]
